FAERS Safety Report 11436145 (Version 2)
Quarter: 2015Q3

REPORT INFORMATION
  Report Type: Spontaneous
  Country: US (occurrence: US)
  Receive Date: 20150821
  Receipt Date: 20150916
  Transmission Date: 20151125
  Serious: No
  Sender: FDA-Public Use
  Company Number: US-ELI_LILLY_AND_COMPANY-US201401008490

PATIENT
  Age: 62 Year
  Sex: Female

DRUGS (9)
  1. PRADAXA [Concomitant]
     Active Substance: DABIGATRAN ETEXILATE MESYLATE
  2. INSULIN HUMAN [Suspect]
     Active Substance: INSULIN HUMAN
     Indication: TYPE 2 DIABETES MELLITUS
     Dosage: 20 U, TID
     Route: 065
     Dates: end: 201310
  3. FUROSEMIDE. [Concomitant]
     Active Substance: FUROSEMIDE
  4. HUMALOG [Suspect]
     Active Substance: INSULIN LISPRO
     Indication: TYPE 2 DIABETES MELLITUS
     Dosage: 18 U, UNKNOWN
     Route: 065
     Dates: start: 201310
  5. AVAPRO [Concomitant]
     Active Substance: IRBESARTAN
  6. HUMALOG [Suspect]
     Active Substance: INSULIN LISPRO
     Dosage: 18 U, UNKNOWN
     Route: 065
  7. LANTUS [Suspect]
     Active Substance: INSULIN GLARGINE
  8. LIPITOR [Concomitant]
     Active Substance: ATORVASTATIN CALCIUM
  9. CARDIZEM [Concomitant]
     Active Substance: DILTIAZEM HYDROCHLORIDE

REACTIONS (2)
  - Irritable bowel syndrome [Not Recovered/Not Resolved]
  - Blood glucose decreased [Unknown]

NARRATIVE: CASE EVENT DATE: 201310
